FAERS Safety Report 9958814 (Version 2)
Quarter: 2014Q1

REPORT INFORMATION
  Report Type: Report from Study
  Country: US (occurrence: US)
  Receive Date: 20140305
  Receipt Date: 20140305
  Transmission Date: 20141002
  Serious: No
  Sender: FDA-Public Use
  Company Number: US-ABBVIE-13P-163-1079111-00

PATIENT
  Age: 50 Year
  Sex: Female
  Weight: 66.28 kg

DRUGS (3)
  1. HUMIRA [Suspect]
     Indication: SJOGREN^S SYNDROME
  2. HUMIRA [Suspect]
     Indication: RHEUMATOID ARTHRITIS
     Dates: start: 20121214
  3. UNNAMED MEDICATION [Concomitant]
     Indication: HYPERTENSION

REACTIONS (6)
  - Arthralgia [Recovering/Resolving]
  - Headache [Not Recovered/Not Resolved]
  - Drug effect incomplete [Not Recovered/Not Resolved]
  - Injection site pain [Recovered/Resolved]
  - Device malfunction [Not Recovered/Not Resolved]
  - Incorrect dose administered [Unknown]
